FAERS Safety Report 26052501 (Version 4)
Quarter: 2025Q4

REPORT INFORMATION
  Report Type: Spontaneous
  Country: EU (occurrence: EU)
  Receive Date: 20251117
  Receipt Date: 20251224
  Transmission Date: 20260117
  Serious: Yes (Hospitalization, Congenital Anomaly, Other)
  Sender: SANDOZ
  Company Number: EU-ACTELION-A-CH2016-131573

PATIENT
  Age: 4 Month
  Sex: Female
  Weight: 1.35 kg

DRUGS (23)
  1. SILDENAFIL [Suspect]
     Active Substance: SILDENAFIL
     Indication: Pulmonary arterial hypertension
     Dosage: 20 MG, TID PARENT ROUTE OF ADMINISTRATION ORAL USE
     Route: 064
     Dates: start: 20150105, end: 20150323
  2. SILDENAFIL [Suspect]
     Active Substance: SILDENAFIL
     Dosage: 20 MG, TID (0.33 DAY)
     Route: 064
  3. SILDENAFIL [Suspect]
     Active Substance: SILDENAFIL
     Dosage: DAILY DOSE: 20 MG MILLIGRAM(S) EVERY DAY, 1 TRIMESTER  7.5. - 33. GESTATIONAL WEEK
     Route: 064
     Dates: start: 20150416, end: 20151010
  4. SILDENAFIL [Suspect]
     Active Substance: SILDENAFIL
     Dosage: DAILY DOSE: 60 MG MILLIGRAM(S) EVERY DAY PARENT ROUTE OF ADMINISTRATION ORAL USE
     Route: 064
     Dates: start: 20150105, end: 20150323
  5. SILDENAFIL [Suspect]
     Active Substance: SILDENAFIL
     Dosage: DAILY DOSE: 60 MG MILLIGRAM(S) EVERY DAY
     Route: 064
  6. AZATHIOPRINE [Suspect]
     Active Substance: AZATHIOPRINE
     Indication: Product used for unknown indication
     Dosage: 50 UNK, QD 1 IN 1 DAY,  1  TRIMESTER  7.5. - 33. GESTATIONAL WEEK
     Route: 064
     Dates: start: 20150416, end: 20151010
  7. PREDNISOLONE [Suspect]
     Active Substance: PREDNISOLONE
     Indication: Systemic lupus erythematosus
     Dosage: UNK
     Route: 064
     Dates: start: 20150727, end: 20150907
  8. PREDNISOLONE [Suspect]
     Active Substance: PREDNISOLONE
     Dosage: 5 MG, QD  DAILY DOSE: 5 MG MILLIGRAM(S) EVERY DAY, 1 TRIMESTER, 7.5. - 33. GESTATIONAL WEEK
     Route: 064
     Dates: start: 20150416, end: 20151010
  9. APIXABAN [Suspect]
     Active Substance: APIXABAN
     Indication: Product used for unknown indication
     Dosage: UNK
     Route: 064
  10. APIXABAN [Suspect]
     Active Substance: APIXABAN
     Dosage: UNK
     Route: 064
  11. OPSUMIT [Suspect]
     Active Substance: MACITENTAN
     Indication: Pulmonary arterial hypertension
     Dosage: DAILY DOSE: 10 MG MILLIGRAM(S) EVERY DAY
     Route: 064
     Dates: start: 20141124, end: 20150323
  12. OPSUMIT [Suspect]
     Active Substance: MACITENTAN
     Dosage: DAILY DOSE: 10 MG MILLIGRAM(S) EVERY DAY, 1 TRIMESTER  0. - 5.2. GESTATIONAL WEEK
     Route: 064
     Dates: start: 20150221, end: 20150330
  13. OPSUMIT [Suspect]
     Active Substance: MACITENTAN
     Dosage: 10 MG, QD
     Route: 064
     Dates: start: 20150323
  14. VENTAVIS [Suspect]
     Active Substance: ILOPROST
     Indication: Product used for unknown indication
     Dosage: UNK  PARENT ROUTE OF ADMINISTRATION INHALATION, 1 TRIMESTER
     Route: 064
  15. TINZAPARIN [Suspect]
     Active Substance: TINZAPARIN
     Indication: Pulmonary arterial hypertension
     Dosage: UNK
     Route: 064
  16. TINZAPARIN [Suspect]
     Active Substance: TINZAPARIN
     Dosage: 20000 [IE/D ] PARENT ROUTE OF ADMINISTRATION  SUBCUTANEOUS
     Route: 064
     Dates: start: 20150416, end: 20151010
  17. HYDROXYCHLOROQUINE [Suspect]
     Active Substance: HYDROXYCHLOROQUINE
     Indication: Systemic lupus erythematosus
     Dosage: 200 [MG/D ] QD, 1 TRIMESTER,  9.3. - 33. GESTATIONAL WEEK
     Route: 064
     Dates: start: 20150428, end: 20151010
  18. HYDROXYCHLOROQUINE [Suspect]
     Active Substance: HYDROXYCHLOROQUINE
     Dosage: 1 TRIMESTER,  9.3. - 33. GESTATIONAL WEEK
     Route: 064
     Dates: start: 20150727, end: 20150907
  19. TREPROSTINIL [Suspect]
     Active Substance: TREPROSTINIL
     Indication: Product used for unknown indication
     Dosage: UNK
     Route: 064
  20. TREPROSTINIL [Suspect]
     Active Substance: TREPROSTINIL
     Dosage: UNK
     Route: 064
  21. Femibion [Concomitant]
     Indication: Prophylaxis of neural tube defect
     Dosage: 1 TRIMESTER PARENT ROUTE OF ADMINISTRATION ORAL USE
     Route: 064
     Dates: start: 20150330, end: 20150428
  22. BETAMETHASONE [Concomitant]
     Active Substance: BETAMETHASONE
     Indication: Maternal therapy to enhance foetal lung maturity
     Dosage: UNK, EVERY 2 DAY (D)
     Route: 064
     Dates: start: 20150916, end: 20150917
  23. ATOSIBAN [Concomitant]
     Active Substance: ATOSIBAN
     Indication: Tocolysis
     Dosage: UNK, 3 TRIMESTER, 33. - 33. GESTATIONAL WEEK
     Route: 064
     Dates: start: 20151010, end: 20151010

REACTIONS (15)
  - Premature baby [Unknown]
  - Neonatal respiratory distress syndrome [Recovered/Resolved]
  - Bradycardia [Recovered/Resolved]
  - Cyanosis [Recovered/Resolved]
  - Hypotonia [Recovered/Resolved]
  - Chondrodysplasia punctata [Unknown]
  - Congenital musculoskeletal disorder [Unknown]
  - Posture abnormal [Unknown]
  - Foetal growth restriction [Unknown]
  - Foetal exposure timing unspecified [Unknown]
  - Brachydactyly [Not Recovered/Not Resolved]
  - Osteochondrodysplasia [Unknown]
  - Congenital musculoskeletal disorder [Unknown]
  - Multiple epiphyseal dysplasia [Not Recovered/Not Resolved]
  - Skeletal dysplasia [Not Recovered/Not Resolved]

NARRATIVE: CASE EVENT DATE: 20151010
